FAERS Safety Report 7543685-3 (Version None)
Quarter: 2011Q2

REPORT INFORMATION
  Report Type: 
  Country: None (occurrence: None)
  Receive Date: 20110613
  Receipt Date: 20030224
  Transmission Date: 20111010
  Serious: Yes (Hospitalization, Other)
  Sender: FDA-Public Use
  Company Number: PHHO2003CA00553

PATIENT
  Sex: Female

DRUGS (3)
  1. PROGESTERONE [Concomitant]
  2. ESTROGEN NOS [Concomitant]
  3. DIOVAN [Suspect]
     Indication: HYPERTENSION
     Dosage: 80 MG, UNK
     Route: 048
     Dates: start: 20021114, end: 20021125

REACTIONS (1)
  - MYOCARDIAL INFARCTION [None]
